FAERS Safety Report 9127098 (Version 1)
Quarter: 2013Q1

REPORT INFORMATION
  Report Type: Spontaneous
  Country: JP (occurrence: JP)
  Receive Date: 20130125
  Receipt Date: 20130125
  Transmission Date: 20140127
  Serious: Yes (Other)
  Sender: FDA-Public Use
  Company Number: PHHY2013JP004713

PATIENT
  Age: 13 Year
  Sex: Male

DRUGS (7)
  1. ETOPOSIDE [Suspect]
     Indication: DESMOPLASTIC SMALL ROUND CELL TUMOUR
     Dosage: 100 MG/M2, UNK
  2. DOXORUBICIN [Suspect]
     Indication: DESMOPLASTIC SMALL ROUND CELL TUMOUR
     Dosage: 37.5 MG/M2, UNK
  3. VINCRISTINE [Suspect]
     Indication: DESMOPLASTIC SMALL ROUND CELL TUMOUR
     Dosage: 1.5 MG/M2, UNK
  4. IFOSFAMIDE [Suspect]
     Indication: DESMOPLASTIC SMALL ROUND CELL TUMOUR
     Dosage: 1800 MG/M2, UNK
  5. CYCLOPHOSPHAMIDE [Suspect]
     Indication: DESMOPLASTIC SMALL ROUND CELL TUMOUR
     Dosage: 1200 MG/M2, UNK
  6. CISPLATIN [Concomitant]
     Indication: DESMOPLASTIC SMALL ROUND CELL TUMOUR
  7. IRRADIATION [Concomitant]
     Indication: DESMOPLASTIC SMALL ROUND CELL TUMOUR
     Dosage: 28.5 GY, UNK

REACTIONS (8)
  - Haematotoxicity [Unknown]
  - Febrile neutropenia [Unknown]
  - Generalised oedema [Unknown]
  - Pleural effusion [None]
  - Post procedural complication [None]
  - Blood creatine phosphokinase increased [None]
  - Myoglobinuria [None]
  - Blood product transfusion dependent [None]
